FAERS Safety Report 5034604-2 (Version None)
Quarter: 2006Q2

REPORT INFORMATION
  Report Type: 
  Country: None (occurrence: None)
  Receive Date: 20060621
  Receipt Date: 20060608
  Transmission Date: 20061013
  Serious: Yes (Death, Hospitalization)
  Sender: FDA-Public Use
  Company Number: 14236

PATIENT
  Sex: Female
  Weight: 3.165 kg

DRUGS (1)
  1. ATRACURIUM BESYLATE [Suspect]
     Dosage: 10 MG ONCE IM
     Route: 030
     Dates: start: 20021129, end: 20021129

REACTIONS (13)
  - ACCIDENTAL EXPOSURE [None]
  - BRADYCARDIA NEONATAL [None]
  - CYANOSIS NEONATAL [None]
  - DRUG ADMINISTERED AT INAPPROPRIATE SITE [None]
  - HYPERGLYCAEMIA [None]
  - INFANTILE APNOEIC ATTACK [None]
  - MEDICATION ERROR [None]
  - METABOLIC ACIDOSIS [None]
  - NEONATAL MULTI-ORGAN FAILURE [None]
  - NEONATAL RESPIRATORY ACIDOSIS [None]
  - NEONATAL RESPIRATORY FAILURE [None]
  - PARALYSIS FLACCID [None]
  - PULSE ABSENT [None]
